FAERS Safety Report 13395776 (Version 1)
Quarter: 2017Q2

REPORT INFORMATION
  Report Type: Spontaneous
  Country: US (occurrence: US)
  Receive Date: 20170401
  Receipt Date: 20170401
  Transmission Date: 20170830
  Serious: Yes (Hospitalization)
  Sender: FDA-Public Use
  Company Number: None

PATIENT
  Age: 82 Year
  Sex: Male
  Weight: 74.6 kg

DRUGS (10)
  1. NIVOLUMAB 100MG [Suspect]
     Active Substance: NIVOLUMAB
     Indication: METASTATIC NEOPLASM
     Route: 042
     Dates: start: 20170302, end: 20170316
  2. LEVOTHYROXINE. [Concomitant]
     Active Substance: LEVOTHYROXINE
  3. IBRUTINIB [Concomitant]
     Active Substance: IBRUTINIB
  4. PRVASTATIN [Concomitant]
  5. PREDNISONE. [Concomitant]
     Active Substance: PREDNISONE
  6. TAMSULOSIN [Concomitant]
     Active Substance: TAMSULOSIN
  7. METOPROLOL. [Concomitant]
     Active Substance: METOPROLOL
  8. NIVOLUMAB 100MG [Suspect]
     Active Substance: NIVOLUMAB
     Indication: HEPATOCELLULAR CARCINOMA
     Route: 042
     Dates: start: 20170302, end: 20170316
  9. NIVOLUMAB 40MG [Suspect]
     Active Substance: NIVOLUMAB
  10. AMLODIPINE [Concomitant]
     Active Substance: AMLODIPINE BESYLATE

REACTIONS (4)
  - Swelling face [None]
  - Rash [None]
  - Lip swelling [None]
  - Swollen tongue [None]

NARRATIVE: CASE EVENT DATE: 20170320
